FAERS Safety Report 4871889-7 (Version None)
Quarter: 2006Q1

REPORT INFORMATION
  Report Type: 
  Country: None (occurrence: None)
  Receive Date: 20060104
  Receipt Date: 20051006
  Transmission Date: 20060701
  Serious: Yes (Hospitalization)
  Sender: FDA-Public Use
  Company Number: US-MERCK-0510USA05787

PATIENT
  Age: 77 Year
  Sex: Male
  Weight: 95 kg

DRUGS (3)
  1. VIOXX [Suspect]
     Indication: ARTHRALGIA
     Route: 048
     Dates: start: 20010101, end: 20040201
  2. VIOXX [Suspect]
     Route: 048
     Dates: start: 20010101, end: 20040201
  3. ASPIRIN [Concomitant]
     Route: 048

REACTIONS (27)
  - ABDOMINAL PAIN [None]
  - ACTINIC KERATOSIS [None]
  - AORTIC ARTERIOSCLEROSIS [None]
  - AORTIC VALVE INCOMPETENCE [None]
  - ATRIAL FIBRILLATION [None]
  - BENIGN PROSTATIC HYPERPLASIA [None]
  - CARDIAC DISORDER [None]
  - CEREBELLAR ATROPHY [None]
  - CEREBRAL ATROPHY [None]
  - CERUMEN IMPACTION [None]
  - DEPRESSION [None]
  - DILATATION ATRIAL [None]
  - DYSURIA [None]
  - ESSENTIAL HYPERTENSION [None]
  - GASTROINTESTINAL DISORDER [None]
  - HYPERTENSION [None]
  - HYPOTHYROIDISM [None]
  - ISCHAEMIC STROKE [None]
  - LIPOMA [None]
  - LYMPHADENOPATHY [None]
  - MITRAL VALVE CALCIFICATION [None]
  - MITRAL VALVE INCOMPETENCE [None]
  - NERVOUS SYSTEM DISORDER [None]
  - OSTEOARTHRITIS [None]
  - PROSTATE CANCER [None]
  - RHINITIS ALLERGIC [None]
  - SPINAL OSTEOARTHRITIS [None]
